FAERS Safety Report 7060351-1 (Version None)
Quarter: 2010Q4

REPORT INFORMATION
  Report Type: 
  Country: None (occurrence: None)
  Receive Date: 20101025
  Receipt Date: 20101012
  Transmission Date: 20110411
  Serious: Yes (Hospitalization)
  Sender: FDA-Public Use
  Company Number: B0678893A

PATIENT
  Sex: Female

DRUGS (3)
  1. ONDANSETRON HCL [Suspect]
     Route: 048
     Dates: start: 20100707, end: 20100711
  2. TEMODAL [Concomitant]
     Route: 048
     Dates: start: 20100707, end: 20100707
  3. KEPPRA [Concomitant]
     Dosage: 1UNIT TWICE PER DAY
     Route: 048
     Dates: end: 20100717

REACTIONS (6)
  - ABDOMINAL PAIN [None]
  - COLITIS ISCHAEMIC [None]
  - FAECES DISCOLOURED [None]
  - FREQUENT BOWEL MOVEMENTS [None]
  - HAEMATOCHEZIA [None]
  - VOMITING [None]
